FAERS Safety Report 11005263 (Version 1)
Quarter: 2015Q2

REPORT INFORMATION
  Report Type: Spontaneous
  Country: CA (occurrence: CA)
  Receive Date: 20150409
  Receipt Date: 20150409
  Transmission Date: 20150821
  Serious: Yes (Other)
  Sender: FDA-Public Use
  Company Number: CA-ACTAVIS-2015-07176

PATIENT
  Sex: Female

DRUGS (1)
  1. ANASTROZOLE (UNKNOWN) [Suspect]
     Active Substance: ANASTROZOLE
     Indication: PRODUCT USED FOR UNKNOWN INDICATION
     Dosage: UNK, QHS
     Route: 065

REACTIONS (4)
  - Dizziness [Unknown]
  - Palpitations [Unknown]
  - Vasodilatation [Unknown]
  - Blood pressure increased [Unknown]
